FAERS Safety Report 9861438 (Version 2)
Quarter: 2014Q1

REPORT INFORMATION
  Report Type: Spontaneous
  Country: US (occurrence: US)
  Receive Date: 20140203
  Receipt Date: 20140303
  Transmission Date: 20141002
  Serious: Yes (Hospitalization)
  Sender: FDA-Public Use
  Company Number: US-BIOGENIDEC-2014BI008612

PATIENT
  Age: 49 Year
  Sex: Female

DRUGS (1)
  1. TECFIDERA [Suspect]
     Indication: MULTIPLE SCLEROSIS
     Route: 048
     Dates: start: 201311

REACTIONS (5)
  - Gastrointestinal hypomotility [Unknown]
  - Rectal haemorrhage [Unknown]
  - Thyroid function test abnormal [Unknown]
  - Haemorrhoidal haemorrhage [Unknown]
  - Colitis [Unknown]
